FAERS Safety Report 11435590 (Version 1)
Quarter: 2015Q3

REPORT INFORMATION
  Report Type: Spontaneous
  Country: US (occurrence: US)
  Receive Date: 20150821
  Receipt Date: 20150821
  Transmission Date: 20151125
  Serious: No
  Sender: FDA-Public Use
  Company Number: US-ELI_LILLY_AND_COMPANY-US201311003780

PATIENT
  Age: 67 Year
  Sex: Male

DRUGS (5)
  1. BABY ASPIRIN [Concomitant]
     Active Substance: ASPIRIN
     Dosage: 1 DF, QD
  2. CIALIS [Suspect]
     Active Substance: TADALAFIL
     Dosage: 10 MG, QD
     Route: 065
  3. LISINOPRIL. [Concomitant]
     Active Substance: LISINOPRIL
     Dosage: 1 DF, UNKNOWN
  4. CIALIS [Suspect]
     Active Substance: TADALAFIL
     Indication: ERECTILE DYSFUNCTION
     Dosage: 5 MG, QD
     Route: 065
     Dates: start: 20131104
  5. ATORVASTATIN [Concomitant]
     Active Substance: ATORVASTATIN
     Dosage: 1 DF, UNKNOWN

REACTIONS (6)
  - Headache [Unknown]
  - Drug ineffective [Unknown]
  - Back pain [Recovering/Resolving]
  - Nausea [Unknown]
  - Muscle spasms [Unknown]
  - Pulse pressure increased [Unknown]

NARRATIVE: CASE EVENT DATE: 20131107
